FAERS Safety Report 17238164 (Version 1)
Quarter: 2020Q1

REPORT INFORMATION
  Report Type: Spontaneous
  Country: US (occurrence: US)
  Receive Date: 20200106
  Receipt Date: 20200106
  Transmission Date: 20200409
  Serious: No
  Sender: FDA-Public Use
  Company Number: US-PACIRA-201900351

PATIENT

DRUGS (4)
  1. BUPIVACAINE HCL [Suspect]
     Active Substance: BUPIVACAINE HYDROCHLORIDE
     Indication: LOCAL ANAESTHESIA
     Dosage: 20 ML OF EXPAREL MIXED WITH 40 ML OF 0.5% BUPIVACAINE HCL
  2. ACETAMINOPHEN. [Suspect]
     Active Substance: ACETAMINOPHEN
     Indication: POSTOPERATIVE ANALGESIA
     Dosage: UNKNOWN
     Route: 042
  3. GABAPENTIN. [Suspect]
     Active Substance: GABAPENTIN
     Indication: POSTOPERATIVE ANALGESIA
     Dosage: 200 MG 3 TIMES PER DAY
  4. EXPAREL [Suspect]
     Active Substance: BUPIVACAINE
     Indication: LOCAL ANAESTHESIA
     Dosage: 20 ML OF EXPAREL MIXED WITH 40 ML OF 0.5% BUPIVACAINE HCL

REACTIONS (1)
  - Product preparation issue [Unknown]
